FAERS Safety Report 12507879 (Version 1)
Quarter: 2016Q2

REPORT INFORMATION
  Report Type: Spontaneous
  Country: US (occurrence: None)
  Receive Date: 20160628
  Receipt Date: 20160628
  Transmission Date: 20160815
  Serious: No
  Sender: FDA-Public Use
  Company Number: None

PATIENT
  Age: 55 Year
  Sex: Female
  Weight: 113.4 kg

DRUGS (1)
  1. TRANEXAMIC ACID. [Suspect]
     Active Substance: TRANEXAMIC ACID
     Indication: HEREDITARY ANGIOEDEMA
     Dosage: 650MG 2 TABLETS BID PO
     Route: 048
     Dates: start: 20160626, end: 20160627

REACTIONS (3)
  - Product substitution issue [None]
  - Drug ineffective [None]
  - Swollen tongue [None]

NARRATIVE: CASE EVENT DATE: 20160627
